FAERS Safety Report 12939688 (Version 1)
Quarter: 2016Q4

REPORT INFORMATION
  Report Type: Spontaneous
  Country: US (occurrence: US)
  Receive Date: 20161115
  Receipt Date: 20161115
  Transmission Date: 20170207
  Serious: No
  Sender: FDA-Public Use
  Company Number: None

PATIENT

DRUGS (1)
  1. DESMOPRESSIN ACETATE 4MCG/ML [Suspect]
     Active Substance: DESMOPRESSIN ACETATE
     Dosage: DESMOPRESSIN ACETATE 4 MCG/ML - INJECTABLE - IV - TYPE - AMPULES SIZE 1 ML
     Route: 042

REACTIONS (1)
  - Product label confusion [None]
